FAERS Safety Report 18348546 (Version 1)
Quarter: 2020Q4

REPORT INFORMATION
  Report Type: Spontaneous
  Country: FR (occurrence: FR)
  Receive Date: 20201006
  Receipt Date: 20201006
  Transmission Date: 20210114
  Serious: Yes (Life-Threatening)
  Sender: FDA-Public Use
  Company Number: FR-ACCORD-204225

PATIENT
  Age: 66 Year
  Sex: Female

DRUGS (1)
  1. FLUOROURACIL ACCORD [Suspect]
     Active Substance: FLUOROURACIL
     Indication: RECTAL ADENOCARCINOMA
     Route: 041
     Dates: start: 20200902

REACTIONS (1)
  - Cardiogenic shock [Recovering/Resolving]

NARRATIVE: CASE EVENT DATE: 20200904
